FAERS Safety Report 11185846 (Version 1)
Quarter: 2015Q2

REPORT INFORMATION
  Report Type: Spontaneous
  Country: US (occurrence: US)
  Receive Date: 20150612
  Receipt Date: 20150612
  Transmission Date: 20150821
  Serious: No
  Sender: FDA-Public Use
  Company Number: US-GLAXOSMITHKLINE-US2015GSK079684

PATIENT
  Age: 73 Year
  Sex: Female

DRUGS (1)
  1. TANZEUM [Suspect]
     Active Substance: ALBIGLUTIDE
     Indication: TYPE 2 DIABETES MELLITUS
     Dosage: 30 MG, WE
     Route: 042
     Dates: start: 201505

REACTIONS (9)
  - Drug dose omission [Unknown]
  - Dehydration [Unknown]
  - Nausea [Unknown]
  - Balance disorder [Unknown]
  - Malaise [Unknown]
  - Vomiting [Unknown]
  - Thirst [Unknown]
  - Device use error [Unknown]
  - Cough [Unknown]

NARRATIVE: CASE EVENT DATE: 201505
